FAERS Safety Report 9745135 (Version 2)
Quarter: 2016Q2

REPORT INFORMATION
  Report Type: Report from Study
  Country: US (occurrence: US)
  Receive Date: 20131211
  Receipt Date: 20160504
  Transmission Date: 20160815
  Serious: Yes (Death)
  Sender: FDA-Public Use
  Company Number: US-ROCHE-1308548

PATIENT
  Sex: Male

DRUGS (6)
  1. AVASTIN [Suspect]
     Active Substance: BEVACIZUMAB
     Route: 042
     Dates: start: 20120817, end: 20120817
  2. FOLINIC ACID [Concomitant]
     Active Substance: LEUCOVORIN
  3. AVASTIN [Suspect]
     Active Substance: BEVACIZUMAB
     Route: 042
     Dates: start: 20120831, end: 20120831
  4. 5-FLUOROURACIL [Concomitant]
     Active Substance: FLUOROURACIL
  5. AVASTIN [Suspect]
     Active Substance: BEVACIZUMAB
     Indication: COLON CANCER
     Route: 042
     Dates: start: 20120803, end: 20120803
  6. OXALIPLATIN. [Concomitant]
     Active Substance: OXALIPLATIN

REACTIONS (3)
  - Anaemia [Fatal]
  - Colon cancer stage IV [Fatal]
  - Acute kidney injury [Fatal]
